FAERS Safety Report 25944338 (Version 1)
Quarter: 2025Q4

REPORT INFORMATION
  Report Type: Spontaneous
  Country: US (occurrence: None)
  Receive Date: 20251021
  Receipt Date: 20251021
  Transmission Date: 20260118
  Serious: Yes (Other)
  Sender: FDA-CTU
  Company Number: None

PATIENT
  Age: 64 Year
  Sex: Male
  Weight: 62.6 kg

DRUGS (1)
  1. ZUSDURI [Suspect]
     Active Substance: MITOMYCIN
     Indication: Bladder cancer
     Dates: start: 20250903, end: 20251015

REACTIONS (17)
  - Incontinence [None]
  - Skin burning sensation [None]
  - Dysuria [None]
  - Urinary tract infection [None]
  - Therapy interrupted [None]
  - Rash pruritic [None]
  - Rash [None]
  - Rash [None]
  - Rash [None]
  - Paraesthesia [None]
  - Penile discharge [None]
  - Product dose omission in error [None]
  - Genital blister [None]
  - Pruritus [None]
  - Penile erythema [None]
  - Skin exfoliation [None]
  - Therapy cessation [None]

NARRATIVE: CASE EVENT DATE: 20251015
